FAERS Safety Report 4680363-2 (Version None)
Quarter: 2005Q2

REPORT INFORMATION
  Report Type: 
  Country: None (occurrence: None)
  Receive Date: 20050601
  Receipt Date: 20050518
  Transmission Date: 20051028
  Serious: Yes (Other)
  Sender: FDA-Public Use
  Company Number: DSA_26457_2005

PATIENT
  Age: 63 Year
  Sex: Female

DRUGS (2)
  1. ENALAPRIL MALEATE [Suspect]
     Indication: ESSENTIAL HYPERTENSION
     Dosage: 10 MG Q DAY PO
     Route: 048
     Dates: end: 19930401
  2. SIMVASTATIN [Suspect]
     Indication: METABOLIC DISORDER
     Dosage: 20 MG Q DAY
     Dates: end: 19930401

REACTIONS (2)
  - MONONEUROPATHY MULTIPLEX [None]
  - NEUROPATHY [None]
